FAERS Safety Report 5115780-X (Version None)
Quarter: 2006Q3

REPORT INFORMATION
  Report Type: 
  Country: None (occurrence: None)
  Receive Date: 20060926
  Receipt Date: 20060926
  Transmission Date: 20061208
  Serious: Yes (Life-Threatening, Hospitalization, Other)
  Sender: FDA-Public Use
  Company Number: None

PATIENT
  Age: 36 Year
  Sex: Female
  Weight: 58.0604 kg

DRUGS (6)
  1. SERAQUEL 25MG  ASTRAZENECA PHARMACEUTICALS [Suspect]
     Indication: BIPOLAR DISORDER
     Dosage: 25 MG 4X'S PER DAY PO [1 25 MG AT NIGHT]
     Route: 048
     Dates: start: 20051011, end: 20060910
  2. SERAQUEL 25MG  ASTRAZENECA PHARMACEUTICALS [Suspect]
     Indication: POST-TRAUMATIC STRESS DISORDER
     Dosage: 25 MG 4X'S PER DAY PO [1 25 MG AT NIGHT]
     Route: 048
     Dates: start: 20051011, end: 20060910
  3. DIAZEPAM [Concomitant]
  4. AMBIEN [Concomitant]
  5. TRAZODONE HCL [Concomitant]
  6. SEROQUEL [Concomitant]

REACTIONS (9)
  - AMNESIA [None]
  - FEELING ABNORMAL [None]
  - HYPERSOMNIA [None]
  - IMPRISONMENT [None]
  - PERSONALITY CHANGE [None]
  - PHARMACEUTICAL PRODUCT COMPLAINT [None]
  - ROAD TRAFFIC ACCIDENT [None]
  - SLEEP DISORDER [None]
  - STRESS [None]
